FAERS Safety Report 6495424-5 (Version None)
Quarter: 2009Q4

REPORT INFORMATION
  Report Type: 
  Country: None (occurrence: None)
  Receive Date: 20091214
  Receipt Date: 20090618
  Transmission Date: 20100525
  Serious: No
  Sender: FDA-Public Use
  Company Number: US-BRISTOL-MYERS SQUIBB COMPANY-14670251

PATIENT
  Age: 8 Year
  Sex: Male
  Weight: 39 kg

DRUGS (2)
  1. ABILIFY [Suspect]
  2. ZOLOFT [Suspect]

REACTIONS (2)
  - AGGRESSION [None]
  - SUICIDAL IDEATION [None]
